FAERS Safety Report 16421030 (Version 1)
Quarter: 2019Q3

REPORT INFORMATION
  Report Type: Spontaneous
  Country: US (occurrence: US)
  Receive Date: 20190611
  Receipt Date: 20190611
  Transmission Date: 20191004
  Serious: No
  Sender: FDA-Public Use
  Company Number: None

PATIENT
  Age: 53 Year
  Sex: Female

DRUGS (1)
  1. ZUBSOLV [Suspect]
     Active Substance: BUPRENORPHINE HYDROCHLORIDE\NALOXONE HYDROCHLORIDE
     Indication: DEPENDENCE
     Dosage: ?          QUANTITY:1 TABLET(S);?
     Route: 060
     Dates: start: 20190422, end: 20190604

REACTIONS (4)
  - Anxiety [None]
  - Panic attack [None]
  - Therapy cessation [None]
  - Dyspnoea [None]

NARRATIVE: CASE EVENT DATE: 20190512
